FAERS Safety Report 8170829-5 (Version None)
Quarter: 2012Q1

REPORT INFORMATION
  Report Type: 
  Country: None (occurrence: None)
  Receive Date: 20120104
  Receipt Date: 20111207
  Transmission Date: 20120608
  Serious: No
  Sender: FDA-Public Use
  Company Number: 2011HGS-002933

PATIENT
  Age: 35 Year
  Sex: Female
  Weight: 52.1637 kg

DRUGS (7)
  1. IBUPROFEN TABLETS [Concomitant]
  2. BENLYSTA [Suspect]
     Dosage: 1 IN 28 D, INTRAVENOUS DRIP
     Route: 041
     Dates: start: 20111026
  3. IMURAN [Concomitant]
  4. TRAMADOL HCL [Concomitant]
  5. PLAQUENIL (HYDROXYCHLOROQUINE SULFATE)(HYDROXYCHLOROQUINE SULFATE) [Concomitant]
  6. ZOLOFT [Concomitant]
  7. XANAX [Concomitant]

REACTIONS (6)
  - FEELING HOT [None]
  - PRURITUS [None]
  - DEPRESSION [None]
  - ERYTHEMA [None]
  - THROAT IRRITATION [None]
  - NAUSEA [None]
